FAERS Safety Report 15932655 (Version 1)
Quarter: 2019Q1

REPORT INFORMATION
  Report Type: Spontaneous
  Country: US (occurrence: US)
  Receive Date: 20190207
  Receipt Date: 20190207
  Transmission Date: 20190417
  Serious: Yes (Hospitalization, Other)
  Sender: FDA-Public Use
  Company Number: US-OTSUKA-2018_024466

PATIENT
  Sex: Male

DRUGS (3)
  1. ABILIFY [Suspect]
     Active Substance: ARIPIPRAZOLE
     Indication: MAJOR DEPRESSION
  2. ARIPIPRAZOLE. [Concomitant]
     Active Substance: ARIPIPRAZOLE
     Indication: PRODUCT USED FOR UNKNOWN INDICATION
     Dosage: UNK
     Route: 065
     Dates: start: 2016, end: 2017
  3. ABILIFY [Suspect]
     Active Substance: ARIPIPRAZOLE
     Indication: BIPOLAR DISORDER
     Dosage: 20-40 MG, QD
     Route: 065
     Dates: start: 2002, end: 2017

REACTIONS (9)
  - Suicide attempt [Recovered/Resolved]
  - Economic problem [Unknown]
  - Weight increased [Unknown]
  - Suicidal ideation [Recovered/Resolved]
  - Eating disorder [Recovered/Resolved]
  - Compulsive shopping [Recovered/Resolved]
  - Obsessive-compulsive disorder [Recovered/Resolved]
  - Gambling disorder [Recovered/Resolved]
  - Mental disorder [Unknown]
